FAERS Safety Report 7142624-7 (Version None)
Quarter: 2010Q4

REPORT INFORMATION
  Report Type: 
  Country: None (occurrence: None)
  Receive Date: 20101207
  Receipt Date: 20101129
  Transmission Date: 20110411
  Serious: Yes (Other)
  Sender: FDA-Public Use
  Company Number: BR-ROCHE-745784

PATIENT
  Sex: Female
  Weight: 72 kg

DRUGS (9)
  1. TOCILIZUMAB [Suspect]
     Indication: RHEUMATOID ARTHRITIS
     Dosage: ROUTE: ENDOVENOUS
     Route: 050
     Dates: start: 20091117
  2. TOCILIZUMAB [Interacting]
     Route: 050
  3. TOCILIZUMAB [Interacting]
     Route: 050
  4. ANAESTHETIC [Interacting]
     Route: 065
     Dates: start: 20101127, end: 20101127
  5. EUTHYROX [Concomitant]
     Indication: HYPOTHYROIDISM
     Dosage: START: MORE THAN 20 YEAR AGO
  6. MODURETIC 5-50 [Concomitant]
  7. NISULID [Concomitant]
  8. PREDNISONE [Concomitant]
  9. PREDNISONE [Concomitant]

REACTIONS (19)
  - ARTHRALGIA [None]
  - BONE PAIN [None]
  - CANDIDIASIS [None]
  - DEPRESSION [None]
  - DRUG INEFFECTIVE [None]
  - DRUG INTERACTION [None]
  - EXTRAPYRAMIDAL DISORDER [None]
  - EYE DISORDER [None]
  - FATIGUE [None]
  - HEADACHE [None]
  - HYPERSENSITIVITY [None]
  - INSOMNIA [None]
  - JOINT SWELLING [None]
  - MUSCULAR WEAKNESS [None]
  - NAUSEA [None]
  - NEPHROLITHIASIS [None]
  - PHARYNGITIS [None]
  - URINARY TRACT INFECTION [None]
  - URTICARIA [None]
